FAERS Safety Report 7936047 (Version 3)
Quarter: 2012Q4

REPORT INFORMATION
  Report Type: Spontaneous
  Country: US (occurrence: None)
  Receive Date: 20110415
  Receipt Date: 20121121
  Transmission Date: 20130627
  Serious: Yes (Other)
  Sender: FDA-Public Use
  Company Number: 20110247

PATIENT
  Age: 68 Year
  Sex: Female
  Weight: 53.52 kg

DRUGS (5)
  1. DEXAMETHASONE SODIUM PHOSPHATE [Suspect]
     Indication: CHEST DISCOMFORT
     Dosage: DOSE X 1, INJECTION NOS
     Dates: start: 20101208, end: 20101208
  2. UNSPECIFIED INGREDIENT [Suspect]
     Dates: start: 20101208
  3. DIOVAN [Concomitant]
  4. XANAX [Concomitant]
  5. THYROID MEDICINE [Concomitant]

REACTIONS (15)
  - Cough [None]
  - Condition aggravated [None]
  - Oral pustule [None]
  - Visual impairment [None]
  - Weight decreased [None]
  - Abnormal sensation in eye [None]
  - Eye pain [None]
  - Blood pressure increased [None]
  - Product quality issue [None]
  - Rash pruritic [None]
  - Cardiac arrest [None]
  - Blood electrolytes abnormal [None]
  - Blood potassium decreased [None]
  - Anxiety [None]
  - Depression [None]
